FAERS Safety Report 26090087 (Version 1)
Quarter: 2025Q4

REPORT INFORMATION
  Report Type: Spontaneous
  Country: US (occurrence: US)
  Receive Date: 20251126
  Receipt Date: 20251126
  Transmission Date: 20260117
  Serious: Yes (Hospitalization)
  Sender: GLAXOSMITHKLINE
  Company Number: US-GSK-US2025GSK152148

PATIENT
  Age: 65 Year
  Sex: Female

DRUGS (5)
  1. LAMOTRIGINE [Suspect]
     Active Substance: LAMOTRIGINE
     Indication: Depressive symptom
     Dosage: UNK
  2. LAMOTRIGINE [Suspect]
     Active Substance: LAMOTRIGINE
     Dosage: 150 MG, QD (TITRATED)
  3. BUPROPION [Concomitant]
     Active Substance: BUPROPION
     Indication: Major depression
     Dosage: 300 MG
  4. PAROXETINE [Concomitant]
     Active Substance: PAROXETINE
     Indication: Major depression
     Dosage: 20 MG
  5. PAROXETINE [Concomitant]
     Active Substance: PAROXETINE
     Dosage: 10 MG

REACTIONS (1)
  - Toxicity to various agents [Recovered/Resolved]
